FAERS Safety Report 15940583 (Version 2)
Quarter: 2019Q2

REPORT INFORMATION
  Report Type: Spontaneous
  Country: US (occurrence: US)
  Receive Date: 20190208
  Receipt Date: 20190419
  Transmission Date: 20190711
  Serious: Yes (Other)
  Sender: FDA-Public Use
  Company Number: US-ASTRAZENECA-2018SF15169

PATIENT
  Sex: Female
  Weight: 79.4 kg

DRUGS (37)
  1. FEXOFENADINE [Concomitant]
     Active Substance: FEXOFENADINE\FEXOFENADINE HYDROCHLORIDE
  2. LYRICA [Concomitant]
     Active Substance: PREGABALIN
  3. PROTONIX [Suspect]
     Active Substance: PANTOPRAZOLE SODIUM
     Indication: DYSPEPSIA
     Dosage: 40.0MG UNKNOWN
     Route: 065
     Dates: start: 2014, end: 2015
  4. HYDROCODONE-ACETAMINOPHEN [Concomitant]
     Active Substance: ACETAMINOPHEN\HYDROCODONE
  5. TOPAMAX [Concomitant]
     Active Substance: TOPIRAMATE
  6. SUCRALFATE. [Concomitant]
     Active Substance: SUCRALFATE
  7. AZITHROMYCIN ANHYDROUS. [Concomitant]
     Active Substance: AZITHROMYCIN ANHYDROUS
  8. MECLIZINE [Concomitant]
     Active Substance: MECLIZINE HYDROCHLORIDE
  9. CLONAZEPAM. [Concomitant]
     Active Substance: CLONAZEPAM
  10. IBUPROFEN. [Concomitant]
     Active Substance: IBUPROFEN
  11. PROTONIX [Suspect]
     Active Substance: PANTOPRAZOLE SODIUM
     Indication: DYSPEPSIA
     Route: 065
     Dates: start: 20061127, end: 20140615
  12. IMDUR [Concomitant]
     Active Substance: ISOSORBIDE MONONITRATE
  13. LORATADINE. [Concomitant]
     Active Substance: LORATADINE
  14. NEXIUM [Suspect]
     Active Substance: ESOMEPRAZOLE MAGNESIUM
     Indication: DYSPEPSIA
     Route: 048
     Dates: start: 2012, end: 2015
  15. VENTOLIN [Concomitant]
     Active Substance: ALBUTEROL SULFATE
  16. PROMETHAZINE [Concomitant]
     Active Substance: PROMETHAZINE\PROMETHAZINE HYDROCHLORIDE
  17. BACLOFEN. [Concomitant]
     Active Substance: BACLOFEN
  18. IBUPROFEN. [Concomitant]
     Active Substance: IBUPROFEN
  19. AMOXICILLIN. [Concomitant]
     Active Substance: AMOXICILLIN
  20. PROMETHAZINE [Concomitant]
     Active Substance: PROMETHAZINE\PROMETHAZINE HYDROCHLORIDE
  21. NEXIUM [Suspect]
     Active Substance: ESOMEPRAZOLE MAGNESIUM
     Indication: DYSPEPSIA
     Route: 048
     Dates: start: 20061127, end: 20140615
  22. NEXIUM [Suspect]
     Active Substance: ESOMEPRAZOLE MAGNESIUM
     Indication: GASTROOESOPHAGEAL REFLUX DISEASE
     Route: 048
     Dates: start: 20061127, end: 20140615
  23. PREVACID [Suspect]
     Active Substance: LANSOPRAZOLE
     Route: 065
     Dates: start: 20061127, end: 20140615
  24. ZETIA [Concomitant]
     Active Substance: EZETIMIBE
  25. PROTONIX [Suspect]
     Active Substance: PANTOPRAZOLE SODIUM
     Indication: GASTROOESOPHAGEAL REFLUX DISEASE
     Route: 065
     Dates: start: 20061127, end: 20140615
  26. PROTONIX [Suspect]
     Active Substance: PANTOPRAZOLE SODIUM
     Indication: GASTROOESOPHAGEAL REFLUX DISEASE
     Dosage: 40.0MG UNKNOWN
     Route: 065
     Dates: start: 2014, end: 2015
  27. ATORVASTATIN [Concomitant]
     Active Substance: ATORVASTATIN
  28. ELMIRON [Concomitant]
     Active Substance: PENTOSAN POLYSULFATE SODIUM
  29. GABAPENTIN. [Concomitant]
     Active Substance: GABAPENTIN
  30. NITROSTAT [Concomitant]
     Active Substance: NITROGLYCERIN
  31. NEXIUM [Suspect]
     Active Substance: ESOMEPRAZOLE MAGNESIUM
     Indication: GASTROOESOPHAGEAL REFLUX DISEASE
     Route: 048
     Dates: start: 2012, end: 2015
  32. TRAZODONE [Concomitant]
     Active Substance: TRAZODONE HYDROCHLORIDE
  33. PROPRANOLOL [Concomitant]
     Active Substance: PROPRANOLOL HYDROCHLORIDE
  34. LIDODERM [Concomitant]
     Active Substance: LIDOCAINE
  35. FLONASE [Concomitant]
     Active Substance: FLUTICASONE PROPIONATE
  36. RAMIPRIL. [Concomitant]
     Active Substance: RAMIPRIL
  37. VYTORIN [Concomitant]
     Active Substance: EZETIMIBE\SIMVASTATIN

REACTIONS (3)
  - Gastrooesophageal reflux disease [Unknown]
  - Cystitis interstitial [Not Recovered/Not Resolved]
  - Tubulointerstitial nephritis [Not Recovered/Not Resolved]
